FAERS Safety Report 23146837 (Version 1)
Quarter: 2023Q4

REPORT INFORMATION
  Report Type: Spontaneous
  Country: CN (occurrence: CN)
  Receive Date: 20231105
  Receipt Date: 20231105
  Transmission Date: 20240110
  Serious: Yes (Other)
  Sender: FDA-Public Use
  Company Number: CN-ENDO PHARMACEUTICALS INC-2023-005577

PATIENT
  Age: 19 Year
  Sex: Male

DRUGS (2)
  1. DIVALPROEX SODIUM [Suspect]
     Active Substance: DIVALPROEX SODIUM
     Indication: Bipolar disorder
     Dosage: 1250 MILLIGRAM, DAILY (DOSAGE WAS INCREASED GRADUALLY IN TWO WEEKS)
     Route: 065
     Dates: start: 2016
  2. DIVALPROEX SODIUM [Suspect]
     Active Substance: DIVALPROEX SODIUM
     Dosage: 500 MILLIGRAM, DAILY
     Route: 065
     Dates: start: 201601

REACTIONS (2)
  - Pleural effusion [Recovering/Resolving]
  - Pneumonia [Unknown]

NARRATIVE: CASE EVENT DATE: 20160101
